FAERS Safety Report 4751587-0 (Version None)
Quarter: 2005Q3

REPORT INFORMATION
  Report Type: 
  Country: None (occurrence: None)
  Receive Date: 20050824
  Receipt Date: 20050816
  Transmission Date: 20060218
  Serious: Yes (Death)
  Sender: FDA-Public Use
  Company Number: AU-GLAXOSMITHKLINE-B0391331A

PATIENT
  Age: 22 Year
  Sex: Male

DRUGS (2)
  1. ZYBAN [Suspect]
  2. ANTI-INFLAMMATORY AGENT [Suspect]

REACTIONS (3)
  - INTENTIONAL MISUSE [None]
  - OVERDOSE [None]
  - SKIN LACERATION [None]
